FAERS Safety Report 9045959 (Version 1)
Quarter: 2013Q1

REPORT INFORMATION
  Report Type: Report from Study
  Country: US (occurrence: US)
  Receive Date: 20130201
  Receipt Date: 20130201
  Transmission Date: 20140127
  Serious: No
  Sender: FDA-Public Use
  Company Number: US-ABBOTT-12P-163-1018879-00

PATIENT
  Age: 22 None
  Sex: Female
  Weight: 48.12 kg

DRUGS (3)
  1. HUMIRA [Suspect]
     Indication: CROHN^S DISEASE
     Dates: start: 20121017, end: 20121017
  2. HUMIRA [Suspect]
     Dates: start: 20121031, end: 20121031
  3. HUMIRA [Suspect]
     Dates: start: 20121115

REACTIONS (10)
  - Dandruff [Not Recovered/Not Resolved]
  - Dry skin [Recovering/Resolving]
  - Dry skin [Not Recovered/Not Resolved]
  - Rash papular [Recovering/Resolving]
  - Rash papular [Not Recovered/Not Resolved]
  - Injection site pruritus [Recovered/Resolved]
  - Injection site urticaria [Recovered/Resolved]
  - Injection site pruritus [Recovered/Resolved]
  - Injection site urticaria [Recovered/Resolved]
  - Folliculitis [Unknown]
